FAERS Safety Report 6523055-7 (Version None)
Quarter: 2009Q4

REPORT INFORMATION
  Report Type: 
  Country: None (occurrence: None)
  Receive Date: 20091222
  Receipt Date: 20091208
  Transmission Date: 20100525
  Serious: Yes (Other)
  Sender: FDA-Public Use
  Company Number: US-1180084

PATIENT
  Age: 52 Year
  Sex: Female

DRUGS (8)
  1. VIGAMOX [Suspect]
     Indication: PROPHYLAXIS
     Dosage: SEE IMAGE
     Route: 047
     Dates: start: 20090305, end: 20090305
  2. VIGAMOX [Suspect]
     Indication: PROPHYLAXIS
     Dosage: SEE IMAGE
     Route: 047
     Dates: start: 20090306, end: 20090306
  3. VIGAMOX [Suspect]
     Indication: PROPHYLAXIS
     Dosage: SEE IMAGE
     Route: 047
     Dates: start: 20090307, end: 20090310
  4. VIGAMOX [Suspect]
     Indication: PROPHYLAXIS
     Dosage: SEE IMAGE
     Route: 047
     Dates: start: 20090607, end: 20090607
  5. VIGAMOX [Suspect]
     Indication: PROPHYLAXIS
     Dosage: SEE IMAGE
     Route: 047
     Dates: start: 20090608, end: 20090608
  6. VIGAMOX [Suspect]
     Indication: PROPHYLAXIS
     Dosage: SEE IMAGE
     Route: 047
     Dates: start: 20090609, end: 20090612
  7. CORTICOSTEROIDS [Concomitant]
  8. LISINOPRIL [Concomitant]

REACTIONS (3)
  - BLOOD PRESSURE INCREASED [None]
  - RETINAL HAEMORRHAGE [None]
  - TENDONITIS [None]
